FAERS Safety Report 5705504-7 (Version None)
Quarter: 2008Q2

REPORT INFORMATION
  Report Type: 
  Country: None (occurrence: None)
  Receive Date: 20080411
  Receipt Date: 20080402
  Transmission Date: 20081010
  Serious: Yes (Other)
  Sender: FDA-Public Use
  Company Number: 163-21880-08030256

PATIENT
  Age: 62 Year
  Sex: Female

DRUGS (8)
  1. REVLIMID [Suspect]
     Indication: MULTIPLE MYELOMA
     Dosage: 25 MG, 1 IN 1 D, ORAL; 12.5 MG, 1 IN 2 D, ORAL
     Route: 048
     Dates: start: 20080122, end: 20080126
  2. REVLIMID [Suspect]
     Indication: PLASMACYTOMA
     Dosage: 25 MG, 1 IN 1 D, ORAL; 12.5 MG, 1 IN 2 D, ORAL
     Route: 048
     Dates: start: 20080122, end: 20080126
  3. REVLIMID [Suspect]
     Indication: MULTIPLE MYELOMA
     Dosage: 25 MG, 1 IN 1 D, ORAL; 12.5 MG, 1 IN 2 D, ORAL
     Route: 048
     Dates: start: 20080211
  4. REVLIMID [Suspect]
     Indication: PLASMACYTOMA
     Dosage: 25 MG, 1 IN 1 D, ORAL; 12.5 MG, 1 IN 2 D, ORAL
     Route: 048
     Dates: start: 20080211
  5. DEXAMETHASONE TAB [Suspect]
     Indication: DRUG USE FOR UNKNOWN INDICATION
  6. DIPHENHYDRAMINE HCL [Concomitant]
  7. ASPIRIN [Concomitant]
  8. PLAVIX [Concomitant]

REACTIONS (5)
  - ASPARTATE AMINOTRANSFERASE INCREASED [None]
  - BLOOD GLUCOSE INCREASED [None]
  - FLUSHING [None]
  - PRURITUS [None]
  - SWELLING FACE [None]
